FAERS Safety Report 6609475-0 (Version None)
Quarter: 2010Q1

REPORT INFORMATION
  Report Type: 
  Country: None (occurrence: None)
  Receive Date: 20100302
  Receipt Date: 20100219
  Transmission Date: 20100710
  Serious: Yes (Hospitalization, Other)
  Sender: FDA-Public Use
  Company Number: FR-JNJFOC-20100209395

PATIENT
  Age: 92 Year
  Sex: Female

DRUGS (17)
  1. DITROPAN [Suspect]
     Indication: URINARY INCONTINENCE
     Route: 048
  2. PROPOFAN [Suspect]
     Indication: ANALGESIC INTERVENTION SUPPORTIVE THERAPY
     Route: 048
  3. COVERSYL [Suspect]
     Indication: HYPERTENSION
     Route: 048
  4. CLAMOXYL [Suspect]
     Indication: DRUG USE FOR UNKNOWN INDICATION
     Route: 048
  5. DIMETANE [Suspect]
     Indication: ANTITUSSIVE THERAPY
     Route: 048
  6. BISOPROLOL [Suspect]
     Indication: HYPERTENSION
     Route: 048
  7. AERIUS [Suspect]
     Indication: PRURITUS
     Route: 048
  8. AERIUS [Suspect]
     Route: 048
  9. LEXOMIL [Suspect]
     Indication: ANXIETY
     Route: 048
  10. TRIMEBUTINE MALEATE [Suspect]
     Indication: DRUG USE FOR UNKNOWN INDICATION
     Route: 065
  11. TRIMETAZIDINE HYDROCHLORIDE [Suspect]
     Indication: DRUG USE FOR UNKNOWN INDICATION
     Route: 065
  12. COAPROVEL [Suspect]
     Indication: DRUG USE FOR UNKNOWN INDICATION
     Route: 065
  13. ZYRTEC [Suspect]
     Indication: PRURITUS
     Route: 065
  14. PRITORPLUS [Suspect]
     Indication: DRUG USE FOR UNKNOWN INDICATION
     Route: 065
  15. CRESTOR [Suspect]
     Indication: DRUG USE FOR UNKNOWN INDICATION
     Route: 065
  16. CERVOXAN [Suspect]
     Indication: DRUG USE FOR UNKNOWN INDICATION
     Route: 065
  17. MOTILIUM [Suspect]
     Indication: DRUG USE FOR UNKNOWN INDICATION
     Route: 065

REACTIONS (3)
  - CARDIAC FAILURE [None]
  - DRUG RASH WITH EOSINOPHILIA AND SYSTEMIC SYMPTOMS [None]
  - RENAL FAILURE [None]
